FAERS Safety Report 9187916 (Version 2)
Quarter: 2013Q1

REPORT INFORMATION
  Report Type: Spontaneous
  Country: IT (occurrence: IT)
  Receive Date: 20130325
  Receipt Date: 20130329
  Transmission Date: 20140127
  Serious: Yes (Hospitalization)
  Sender: FDA-Public Use
  Company Number: PHHY2013IT027778

PATIENT
  Age: 30 Year
  Sex: Female

DRUGS (3)
  1. DICLOFENAC [Suspect]
     Indication: INTENTIONAL OVERDOSE
     Dosage: 1 G TOTAL
     Route: 048
     Dates: start: 20130209, end: 20130209
  2. PARACETAMOL [Suspect]
     Indication: INTENTIONAL OVERDOSE
     Dosage: 16 G, TOTAL
     Route: 048
     Dates: start: 20130209, end: 20130209
  3. MAALOX [Concomitant]
     Route: 048

REACTIONS (2)
  - Toxicity to various agents [Recovering/Resolving]
  - Vomiting [Recovering/Resolving]
